FAERS Safety Report 8512334 (Version 2)
Quarter: 2013Q2

REPORT INFORMATION
  Report Type: Spontaneous
  Country: US (occurrence: US)
  Receive Date: 20120413
  Receipt Date: 20130404
  Transmission Date: 20140414
  Serious: Yes (Hospitalization)
  Sender: FDA-Public Use
  Company Number: US-ASTRAZENECA-2011SE51723

PATIENT
  Age: 65 Year
  Sex: Female
  Weight: 112.5 kg

DRUGS (14)
  1. NEXIUM [Suspect]
     Indication: GASTROOESOPHAGEAL REFLUX DISEASE
     Route: 048
     Dates: start: 2000
  2. LISINOPRIL [Suspect]
     Indication: PROPHYLAXIS
     Route: 048
     Dates: start: 201302
  3. TIRCOR [Concomitant]
     Indication: BLOOD CHOLESTEROL INCREASED
     Route: 048
     Dates: start: 2003
  4. METFORMIN [Concomitant]
     Indication: TYPE 2 DIABETES MELLITUS
     Route: 048
     Dates: start: 2003
  5. LORTAB [Concomitant]
     Indication: PAIN
     Dosage: 5/500 MG AS REQUIRED
     Route: 048
     Dates: start: 201209
  6. TRAMADOL [Concomitant]
     Indication: PAIN
     Route: 048
  7. LORAZEPAM [Concomitant]
     Indication: SLEEP DISORDER
     Route: 048
     Dates: start: 201203, end: 201208
  8. LORAZEPAM [Concomitant]
     Indication: SLEEP DISORDER
     Route: 048
     Dates: start: 201212
  9. ASPIRIN [Concomitant]
     Indication: CARDIAC DISORDER
     Route: 048
     Dates: start: 2003
  10. CYMBALTA [Concomitant]
     Indication: PAIN
     Route: 048
     Dates: start: 201209
  11. CYMBALTA [Concomitant]
     Indication: DEPRESSION
     Route: 048
     Dates: start: 201209
  12. ZITHROMAX [Concomitant]
     Indication: GASTROOESOPHAGEAL REFLUX DISEASE
     Route: 048
     Dates: start: 2009
  13. PRAVASTATIN [Concomitant]
     Indication: BLOOD CHOLESTEROL INCREASED
     Route: 048
  14. DICLOFENAC [Concomitant]
     Indication: PAIN
     Route: 048
     Dates: start: 2004

REACTIONS (9)
  - Arthritis [Unknown]
  - Intervertebral disc degeneration [Unknown]
  - Ill-defined disorder [Unknown]
  - Aphagia [Not Recovered/Not Resolved]
  - Dyspepsia [Not Recovered/Not Resolved]
  - Type 2 diabetes mellitus [Unknown]
  - Feeling abnormal [Unknown]
  - Pouchitis [Unknown]
  - Drug dose omission [Unknown]
